FAERS Safety Report 9334528 (Version 2)
Quarter: 2013Q2

REPORT INFORMATION
  Report Type: Spontaneous
  Country: JP (occurrence: JP)
  Receive Date: 20130606
  Receipt Date: 20130611
  Transmission Date: 20140414
  Serious: Yes (Other)
  Sender: FDA-Public Use
  Company Number: JP-BAXTER-2013BAX014718

PATIENT
  Age: 65 Year
  Sex: Male
  Weight: 54.5 kg

DRUGS (12)
  1. SUPRANE [Suspect]
     Indication: SEDATIVE THERAPY
     Route: 007
     Dates: start: 20121226, end: 20121226
  2. PROPOFOL [Suspect]
     Indication: SEDATIVE THERAPY
     Route: 042
     Dates: start: 20121226, end: 20121226
  3. ESLAX [Suspect]
     Indication: MUSCLE RELAXANT THERAPY
     Route: 042
     Dates: start: 20121226, end: 20121226
  4. FENTANYL CITRATE [Suspect]
     Indication: ANALGESIC THERAPY
     Route: 042
     Dates: start: 20121226, end: 20121226
  5. ULTIVA [Suspect]
     Indication: ANALGESIC THERAPY
     Route: 041
     Dates: start: 20121226, end: 20121226
  6. MORPHINE HYDROCHLORIDE HYDRATE [Suspect]
     Indication: ANALGESIC THERAPY
     Route: 042
     Dates: start: 20121226, end: 20121226
  7. ROPION [Suspect]
     Indication: ANALGESIC THERAPY
     Route: 042
     Dates: start: 20121226, end: 20121226
  8. EPHEDRINE [Suspect]
     Indication: BLOOD PRESSURE MANAGEMENT
     Route: 042
     Dates: start: 20121226, end: 20121226
  9. ANAPEINE [Suspect]
     Indication: ANALGESIC THERAPY
     Route: 008
     Dates: start: 20121226, end: 20121226
  10. ANAPEINE [Suspect]
     Dosage: 206 CONTINUOUS
     Route: 008
     Dates: start: 20121226
  11. BRIDION [Suspect]
     Indication: ANAESTHESIA REVERSAL
     Route: 042
     Dates: start: 20121226, end: 20121226
  12. NEOSYNESIN [Suspect]
     Indication: ANALGESIC THERAPY
     Dosage: 0.75
     Route: 042
     Dates: start: 20121226, end: 20121226

REACTIONS (3)
  - Oropharyngeal spasm [Recovered/Resolved]
  - Dyspnoea [Recovered/Resolved]
  - Airway complication of anaesthesia [Recovered/Resolved]
